FAERS Safety Report 7935854-5 (Version None)
Quarter: 2011Q4

REPORT INFORMATION
  Report Type: 
  Country: None (occurrence: None)
  Receive Date: 20111121
  Receipt Date: 20111110
  Transmission Date: 20120403
  Serious: Yes (Disabling)
  Sender: FDA-Public Use
  Company Number: 2011AP002672

PATIENT
  Age: 17 Year
  Sex: Male

DRUGS (1)
  1. TERBINAFINE HCL [Suspect]

REACTIONS (1)
  - RHABDOMYOLYSIS [None]
